FAERS Safety Report 4746448-7 (Version None)
Quarter: 2005Q3

REPORT INFORMATION
  Report Type: 
  Country: None (occurrence: None)
  Receive Date: 20050817
  Receipt Date: 20050523
  Transmission Date: 20060218
  Serious: Yes (Hospitalization)
  Sender: FDA-Public Use
  Company Number: FR-AMGEN-UK136015

PATIENT
  Sex: Male

DRUGS (11)
  1. MIMPARA [Suspect]
     Indication: HYPERPARATHYROIDISM SECONDARY
     Route: 048
     Dates: start: 20050515, end: 20050516
  2. FOLINIC ACID [Concomitant]
  3. ROHYPNOL [Concomitant]
  4. ATARAX [Concomitant]
  5. CORDARONE [Concomitant]
  6. KAYEXALATE [Concomitant]
  7. PREVISCAN [Concomitant]
  8. SECTRAL [Concomitant]
  9. ARANESP [Concomitant]
  10. VENOFER [Concomitant]
  11. CALCIUM CARBONATE [Concomitant]

REACTIONS (10)
  - ACUTE CORONARY SYNDROME [None]
  - ACUTE RESPIRATORY FAILURE [None]
  - CARDIAC DISORDER [None]
  - CONVULSION [None]
  - HYPOTENSION [None]
  - KYPHOSIS [None]
  - LUNG DISORDER [None]
  - MYOCARDIAL ISCHAEMIA [None]
  - PNEUMONIA [None]
  - RESPIRATORY DISTRESS [None]
